FAERS Safety Report 21809533 (Version 1)
Quarter: 2023Q1

REPORT INFORMATION
  Report Type: Spontaneous
  Country: BE (occurrence: BE)
  Receive Date: 20230103
  Receipt Date: 20230103
  Transmission Date: 20230418
  Serious: Yes (Other)
  Sender: FDA-Public Use
  Company Number: BE-CORZA MEDICAL GMBH-2022-BE-002201

PATIENT

DRUGS (2)
  1. TACHOSIL [Suspect]
     Active Substance: FIBRINOGEN HUMAN\THROMBIN HUMAN
     Indication: Cranioplasty
     Dosage: UNK
     Route: 065
  2. TACHOSIL [Suspect]
     Active Substance: FIBRINOGEN HUMAN\THROMBIN HUMAN
     Indication: Pseudomeningocele

REACTIONS (2)
  - Cerebrospinal fluid leakage [Unknown]
  - Off label use [Unknown]
